FAERS Safety Report 21413446 (Version 5)
Quarter: 2025Q1

REPORT INFORMATION
  Report Type: Report from Study
  Country: JP (occurrence: JP)
  Receive Date: 20221006
  Receipt Date: 20250219
  Transmission Date: 20250409
  Serious: Yes (Hospitalization)
  Sender: TAKEDA
  Company Number: JP-TAKEDA-2022TJP074962

PATIENT
  Age: 69 Year
  Sex: Male
  Weight: 65 kg

DRUGS (12)
  1. TEDUGLUTIDE [Suspect]
     Active Substance: TEDUGLUTIDE
     Indication: Short-bowel syndrome
     Dosage: 0.025 MILLIGRAM/KILOGRAM, QD
     Dates: start: 20220502, end: 20220929
  2. TEDUGLUTIDE [Suspect]
     Active Substance: TEDUGLUTIDE
  3. TEDUGLUTIDE [Suspect]
     Active Substance: TEDUGLUTIDE
     Dosage: 0.025 MILLIGRAM/KILOGRAM, QD
     Dates: start: 202309
  4. TEDUGLUTIDE [Suspect]
     Active Substance: TEDUGLUTIDE
  5. AZOSEMIDE [Concomitant]
     Active Substance: AZOSEMIDE
  6. TRICHLORMETHIAZIDE [Concomitant]
     Active Substance: TRICHLORMETHIAZIDE
  7. SODIUM BICARBONATE [Concomitant]
     Active Substance: SODIUM BICARBONATE
  8. NIFEDIPINE [Concomitant]
     Active Substance: NIFEDIPINE
  9. AMLODIPINE [Concomitant]
     Active Substance: AMLODIPINE BESYLATE
  10. DOXAZOSIN [Concomitant]
     Active Substance: DOXAZOSIN MESYLATE
  11. POLAPREZINC [Concomitant]
     Active Substance: POLAPREZINC
  12. AMINO ACIDS\CARBOHYDRATES\MINERALS\SOYBEAN OIL\VITAMINS [Concomitant]
     Active Substance: AMINO ACIDS\CARBOHYDRATES\MINERALS\SOYBEAN OIL\VITAMINS

REACTIONS (4)
  - Hepatic function abnormal [Recovered/Resolved]
  - Constipation [Recovering/Resolving]
  - Diarrhoea [Recovered/Resolved]
  - Intentional dose omission [Unknown]

NARRATIVE: CASE EVENT DATE: 20220505
